FAERS Safety Report 19271564 (Version 1)
Quarter: 2021Q2

REPORT INFORMATION
  Report Type: Spontaneous
  Country: US (occurrence: US)
  Receive Date: 20210518
  Receipt Date: 20210518
  Transmission Date: 20210717
  Serious: No
  Sender: FDA-Public Use
  Company Number: US-GLAXOSMITHKLINE-USCH2021AMR028582

PATIENT
  Sex: Female
  Weight: 77.11 kg

DRUGS (8)
  1. EQUATE NICOTINE [Suspect]
     Active Substance: NICOTINE
  2. LOZENGES [Concomitant]
     Active Substance: CAPSICUM OLEORESIN
     Indication: PRODUCT USED FOR UNKNOWN INDICATION
     Dosage: UNK
  3. WELLBUTRIN [Suspect]
     Active Substance: BUPROPION HYDROCHLORIDE
     Indication: SMOKING CESSATION THERAPY
     Dosage: UNK
     Dates: start: 202010
  4. EQUATE NICOTINE [Suspect]
     Active Substance: NICOTINE
  5. EQUATE NICOTINE [Suspect]
     Active Substance: NICOTINE
  6. EQUATE NICOTINE [Suspect]
     Active Substance: NICOTINE
     Indication: SMOKING CESSATION THERAPY
     Dosage: UNK
     Dates: start: 202011
  7. EQUATE NICOTINE [Suspect]
     Active Substance: NICOTINE
     Indication: SMOKING CESSATION THERAPY
     Dosage: UNK
     Dates: start: 202011
  8. EQUATE NICOTINE [Suspect]
     Active Substance: NICOTINE
     Indication: SMOKING CESSATION THERAPY
     Dosage: UNK
     Dates: start: 202011

REACTIONS (9)
  - Reaction to excipient [Unknown]
  - Drug ineffective for unapproved indication [Unknown]
  - Muscle spasms [Unknown]
  - Blood pressure increased [Unknown]
  - Anxiety [Unknown]
  - Product use in unapproved indication [Unknown]
  - Drug effective for unapproved indication [Unknown]
  - Insomnia [Unknown]
  - Feeling abnormal [Unknown]
